FAERS Safety Report 10120069 (Version 1)
Quarter: 2014Q2

REPORT INFORMATION
  Report Type: Spontaneous
  Country: US (occurrence: US)
  Receive Date: 20140425
  Receipt Date: 20140425
  Transmission Date: 20141212
  Serious: No
  Sender: FDA-Public Use
  Company Number: US-PFIZER INC-2014112541

PATIENT
  Age: 61 Year
  Sex: Female
  Weight: 102.4 kg

DRUGS (7)
  1. EFFEXOR XR [Suspect]
     Indication: DEPRESSION
     Dosage: 150 MG, UNK
     Dates: start: 2004
  2. EFFEXOR XR [Suspect]
     Dosage: 37.5 MG, UNK
  3. EFFEXOR XR [Suspect]
     Dosage: 75 MG, DAILY
  4. EFFEXOR XR [Suspect]
     Dosage: 37.5 MG, UNK
     Dates: start: 20140420, end: 20140421
  5. TUMS [Concomitant]
     Indication: ABDOMINAL DISCOMFORT
     Dosage: UNK
  6. TUMS [Concomitant]
     Indication: DYSPEPSIA
  7. LISINOPRIL W/HYDROCHLOROTHIAZIDE [Concomitant]
     Indication: HYPERTENSION
     Dosage: (LISINOPRIL10/ HYDROCHLOROTHIAZIDE2.5MG), DAILY

REACTIONS (6)
  - Inappropriate affect [Unknown]
  - Influenza [Unknown]
  - Throat irritation [Unknown]
  - Headache [Unknown]
  - Nasopharyngitis [Unknown]
  - Ear pain [Unknown]
